FAERS Safety Report 9783219 (Version 1)
Quarter: 2013Q4

REPORT INFORMATION
  Report Type: Spontaneous
  Country: FI (occurrence: FI)
  Receive Date: 20131226
  Receipt Date: 20131226
  Transmission Date: 20140711
  Serious: Yes (Hospitalization)
  Sender: FDA-Public Use
  Company Number: PHHY2013FI150705

PATIENT
  Age: 42 Year
  Sex: Female

DRUGS (1)
  1. AZITHROMYCIN SANDOZ [Suspect]
     Dosage: 500 MG, UNK
     Route: 048
     Dates: start: 20131205

REACTIONS (7)
  - Feeling abnormal [Unknown]
  - Dysstasia [Unknown]
  - Vision blurred [Unknown]
  - Headache [Unknown]
  - Deafness [Unknown]
  - Diarrhoea [Unknown]
  - Dizziness [Unknown]
